FAERS Safety Report 12871708 (Version 1)
Quarter: 2016Q4

REPORT INFORMATION
  Report Type: Spontaneous
  Country: US (occurrence: US)
  Receive Date: 20161021
  Receipt Date: 20161021
  Transmission Date: 20170207
  Serious: No
  Sender: FDA-Public Use
  Company Number: None

PATIENT

DRUGS (2)
  1. HYDROCORTISONE/ACETAMINOPHEN 7.5/325 MG [Suspect]
     Active Substance: ACETAMINOPHEN\HYDROCODONE
  2. HYDROCORTISONE/ACETAMINOPHEN 5/325 MG [Suspect]
     Active Substance: ACETAMINOPHEN\HYDROCODONE

REACTIONS (1)
  - Drug dispensing error [None]
